FAERS Safety Report 11131929 (Version 2)
Quarter: 2015Q2

REPORT INFORMATION
  Report Type: Spontaneous
  Country: PT (occurrence: PT)
  Receive Date: 20150522
  Receipt Date: 20150623
  Transmission Date: 20150821
  Serious: Yes (Death, Life-Threatening, Hospitalization, Disabling, Other)
  Sender: FDA-Public Use
  Company Number: PT-GLAXOSMITHKLINE-PT2015068196

PATIENT
  Age: 34 Year
  Sex: Female
  Weight: 56 kg

DRUGS (3)
  1. LAMICTAL [Suspect]
     Active Substance: LAMOTRIGINE
     Indication: MENTAL DISORDER
     Dosage: 50 MG, QD
     Route: 048
     Dates: start: 20150202, end: 20150216
  2. ACIDO VALPROICO [Concomitant]
     Indication: PRODUCT USED FOR UNKNOWN INDICATION
     Dosage: 1 DF, QD
     Route: 065
  3. ZYPREXA [Concomitant]
     Active Substance: OLANZAPINE
     Indication: PRODUCT USED FOR UNKNOWN INDICATION
     Dosage: 1 DF, QD
     Route: 065

REACTIONS (4)
  - Skin exfoliation [Fatal]
  - Multi-organ failure [Fatal]
  - Stevens-Johnson syndrome [Fatal]
  - Dermatitis allergic [Fatal]

NARRATIVE: CASE EVENT DATE: 201502
